FAERS Safety Report 14355390 (Version 1)
Quarter: 2018Q1

REPORT INFORMATION
  Report Type: Spontaneous
  Country: FR (occurrence: FR)
  Receive Date: 20180105
  Receipt Date: 20180105
  Transmission Date: 20180509
  Serious: Yes (Other)
  Sender: FDA-Public Use
  Company Number: FR-MERCK KGAA-2039450

PATIENT
  Age: 67 Year
  Sex: Female
  Weight: 67 kg

DRUGS (5)
  1. TAHOR [Concomitant]
     Active Substance: ATORVASTATIN CALCIUM
     Route: 048
  2. NOVOTHYROX [Suspect]
     Active Substance: LEVOTHYROXINE SODIUM
     Route: 048
     Dates: start: 20170510
  3. SERESTA (OXAZEPAM) [Concomitant]
     Active Substance: OXAZEPAM
     Route: 048
  4. MICARDISPLUS(PRITORPLUS)(HYDROCHLOROTHIAZIDE~~TELMISARTAN) [Concomitant]
     Route: 048
  5. JANUMET(RISTFOR)(METFORMIN HYDROCHLORIDE~~SITAGLIPTIN PHOSPHATE MONOHY [Concomitant]
     Route: 048

REACTIONS (8)
  - Blood thyroid stimulating hormone normal [Recovered/Resolved]
  - Headache [Not Recovered/Not Resolved]
  - Abdominal pain [Not Recovered/Not Resolved]
  - Visual impairment [Not Recovered/Not Resolved]
  - Hot flush [Not Recovered/Not Resolved]
  - Anxiety [Not Recovered/Not Resolved]
  - Vertigo [Not Recovered/Not Resolved]
  - Fatigue [Not Recovered/Not Resolved]

NARRATIVE: CASE EVENT DATE: 201705
